FAERS Safety Report 9310592 (Version 2)
Quarter: 2013Q2

REPORT INFORMATION
  Report Type: Spontaneous
  Country: PH (occurrence: PH)
  Receive Date: 20130527
  Receipt Date: 20130603
  Transmission Date: 20140414
  Serious: Yes (Death, Other)
  Sender: FDA-Public Use
  Company Number: PH-009507513-1305PHL014893

PATIENT
  Age: 81 Year
  Sex: Female

DRUGS (1)
  1. JANUVIA [Suspect]
     Dosage: ONE TABLET ONCE A DAY
     Route: 048
     Dates: start: 201205, end: 20130524

REACTIONS (1)
  - Cardiac arrest [Fatal]
